FAERS Safety Report 8332606-1 (Version None)
Quarter: 2012Q1

REPORT INFORMATION
  Report Type: 
  Country: None (occurrence: None)
  Receive Date: 20120327
  Receipt Date: 20101217
  Transmission Date: 20120608
  Serious: Yes (Other)
  Sender: FDA-Public Use
  Company Number: PHEH2009US16261

PATIENT
  Age: 52 Year
  Sex: Male
  Weight: 77.1 kg

DRUGS (3)
  1. GLEEVEC [Suspect]
     Indication: GASTRIC CANCER
     Dosage: 400 MG, QD, ORAL
     Route: 048
  2. GLEEVEC [Suspect]
     Indication: GASTRIC CANCER
     Dosage: 400 MG DAILY, ORAL
     Route: 048
  3. GLEEVEC [Suspect]
     Indication: GASTRIC CANCER
     Dosage: 400 MG, QD, ORAL
     Route: 048
     Dates: start: 20090723

REACTIONS (21)
  - PARAESTHESIA [None]
  - RASH PRURITIC [None]
  - DIARRHOEA [None]
  - NAUSEA [None]
  - MUSCLE SPASMS [None]
  - ERYTHEMA [None]
  - PAIN IN EXTREMITY [None]
  - RASH [None]
  - VOMITING [None]
  - SWELLING [None]
  - MYALGIA [None]
  - FLUID RETENTION [None]
  - BONE PAIN [None]
  - PYREXIA [None]
  - JAUNDICE [None]
  - FATIGUE [None]
  - EYE DISORDER [None]
  - DYSPNOEA [None]
  - HAEMATOCHEZIA [None]
  - POLLAKIURIA [None]
  - WEIGHT INCREASED [None]
